FAERS Safety Report 15377488 (Version 1)
Quarter: 2018Q3

REPORT INFORMATION
  Report Type: Spontaneous
  Country: US (occurrence: US)
  Receive Date: 20180913
  Receipt Date: 20180913
  Transmission Date: 20181010
  Serious: No
  Sender: FDA-Public Use
  Company Number: US-BAYER-2018-170755

PATIENT
  Sex: Female
  Weight: 160 kg

DRUGS (4)
  1. ALEVE [Suspect]
     Active Substance: NAPROXEN SODIUM
     Indication: PAIN
     Dosage: 2 DF, UNK
     Route: 048
  2. PRAVASTATIN. [Concomitant]
     Active Substance: PRAVASTATIN
     Dosage: UNK
  3. AMARYL [Concomitant]
     Active Substance: GLIMEPIRIDE
     Dosage: UNK
  4. LISINOPRIL. [Concomitant]
     Active Substance: LISINOPRIL
     Dosage: UNK

REACTIONS (5)
  - Eye swelling [Recovered/Resolved]
  - Urticaria [Recovered/Resolved]
  - Drug hypersensitivity [Recovered/Resolved]
  - Swollen tongue [Recovered/Resolved]
  - Lip swelling [Recovered/Resolved]
